FAERS Safety Report 6340963-0 (Version None)
Quarter: 2009Q3

REPORT INFORMATION
  Report Type: 
  Country: None (occurrence: None)
  Receive Date: 20090904
  Receipt Date: 20090804
  Transmission Date: 20100115
  Serious: No
  Sender: FDA-Public Use
  Company Number: US-BAYER-200913122BCC

PATIENT
  Age: 72 Year
  Sex: Female
  Weight: 59 kg

DRUGS (6)
  1. FINACEA [Suspect]
     Indication: ROSACEA
     Dosage: ACCIDENTAL EXPOSURE
     Route: 047
     Dates: start: 20090715
  2. FINACEA [Suspect]
     Route: 061
     Dates: start: 20090715
  3. UNKNOWN MULTIVITAMIN [Concomitant]
     Route: 065
  4. CALCIUM [Concomitant]
     Route: 065
  5. ESTROGEN [Concomitant]
     Route: 065
  6. GABAPENTIN [Concomitant]
     Route: 065

REACTIONS (2)
  - EYE IRRITATION [None]
  - OCULAR HYPERAEMIA [None]
